FAERS Safety Report 19568347 (Version 3)
Quarter: 2024Q3

REPORT INFORMATION
  Report Type: Spontaneous
  Country: US (occurrence: US)
  Receive Date: 20210715
  Receipt Date: 20240708
  Transmission Date: 20241017
  Serious: No
  Sender: PAREXEL
  Company Number: US-AVEO ONCOLOGY-2021-AVEO-US003427

PATIENT

DRUGS (1)
  1. FOTIVDA [Suspect]
     Active Substance: TIVOZANIB HYDROCHLORIDE
     Indication: Renal cell carcinoma
     Dosage: 1.34 MG DAILY FOR 21 DAYS THEN 7 DAYS OFF
     Route: 048
     Dates: start: 20210422

REACTIONS (7)
  - Stent placement [Unknown]
  - Dysphonia [Not Recovered/Not Resolved]
  - Blood pressure increased [Unknown]
  - Fatigue [Unknown]
  - Haemoglobin decreased [Unknown]
  - Amnesia [Recovered/Resolved]
  - Post procedural haemorrhage [Unknown]
